FAERS Safety Report 14907323 (Version 1)
Quarter: 2018Q2

REPORT INFORMATION
  Report Type: Other
  Country: DE (occurrence: DE)
  Receive Date: 20180517
  Receipt Date: 20180517
  Transmission Date: 20180711
  Serious: Yes (Hospitalization, Other)
  Sender: FDA-Public Use
  Company Number: DE-MACLEODS PHARMACEUTICALS US LTD-MAC2018013312

PATIENT

DRUGS (7)
  1. AMLODIPINE BESYLATE 10MG TABLET [Concomitant]
     Active Substance: AMLODIPINE BESYLATE
     Indication: PRODUCT USED FOR UNKNOWN INDICATION
     Dosage: 10 MILLIGRAM, QD, (0-0-1-0)
     Route: 048
  2. DIGOXIN. [Suspect]
     Active Substance: DIGOXIN
     Indication: PRODUCT USED FOR UNKNOWN INDICATION
     Dosage: 0.25 MILLIGRAM, QD, (1-0-0-0), MEDICATION ERRORS
     Route: 048
  3. APIXABAN [Concomitant]
     Active Substance: APIXABAN
     Indication: PRODUCT USED FOR UNKNOWN INDICATION
     Dosage: 5 MILLIGRAM, BID, (1-0-0.5-0)
     Route: 048
  4. VALSARTAN TABLET 160 MG [Suspect]
     Active Substance: VALSARTAN
     Indication: PRODUCT USED FOR UNKNOWN INDICATION
     Dosage: 160 MILLIGRAM,  (0.5-0-0-0)
     Route: 048
  5. ATORVASTATIN 20 MG [Concomitant]
     Active Substance: ATORVASTATIN
     Indication: PRODUCT USED FOR UNKNOWN INDICATION
     Dosage: 20 MILLIGRAM, QD, ( 0-0-1-0)
     Route: 048
  6. ESCITALOPRAM 10MG TABLET [Concomitant]
     Active Substance: ESCITALOPRAM OXALATE
     Indication: PRODUCT USED FOR UNKNOWN INDICATION
     Dosage: 10 MILLIGRAM, QD, (1-0-0-0)
     Route: 048
  7. METOPROLOL TABLET [Concomitant]
     Active Substance: METOPROLOL
     Indication: PRODUCT USED FOR UNKNOWN INDICATION
     Dosage: 95 MILLIGRAM, QD, (1-0-0-0)
     Route: 048

REACTIONS (12)
  - Night sweats [Unknown]
  - Therapeutic drug monitoring analysis not performed [Unknown]
  - General physical health deterioration [Unknown]
  - Dizziness [Unknown]
  - Angina pectoris [Unknown]
  - Dyspnoea [Unknown]
  - Cough [Unknown]
  - Nausea [Unknown]
  - Arrhythmia [Unknown]
  - Oedema peripheral [Unknown]
  - Fatigue [Unknown]
  - Asthenia [Unknown]
